FAERS Safety Report 18285861 (Version 1)
Quarter: 2020Q3

REPORT INFORMATION
  Report Type: Spontaneous
  Country: DE (occurrence: DE)
  Receive Date: 20200919
  Receipt Date: 20200919
  Transmission Date: 20201103
  Serious: Yes (Hospitalization)
  Sender: FDA-Public Use
  Company Number: DE-ACCORD-201621

PATIENT
  Age: 70 Year
  Sex: Female
  Weight: 90 kg

DRUGS (11)
  1. SALBUTAMOL [Concomitant]
     Active Substance: ALBUTEROL
     Dosage: NK MG, IF NECESSARY, METERED AEROSOL
     Route: 055
  2. CITALOPRAM [Concomitant]
     Active Substance: CITALOPRAM HYDROBROMIDE
     Dosage: 20 MG, 1?0?0?0, TABLET
     Route: 048
  3. COLECALCIFEROL [Concomitant]
     Active Substance: CHOLECALCIFEROL
     Dosage: 1000 IE, 1?0?0?0, TABLET
     Route: 048
  4. FORMOTEROL [Concomitant]
     Active Substance: FORMOTEROL
     Dosage: 100/6 MICRO G, 2?0?2?0, METERED AEROSOL
     Route: 055
  5. RAMIPRIL. [Concomitant]
     Active Substance: RAMIPRIL
     Dosage: 5 MG, 1?0?1?0, TABLET
     Route: 048
  6. PACLITAXEL/PACLITAXEL LIPOSOME [Suspect]
     Active Substance: PACLITAXEL
     Indication: PRODUCT USED FOR UNKNOWN INDICATION
     Dosage: NK MG, SINCE 25022020, TABLET
     Route: 048
     Dates: start: 20200225
  7. QUETIAPINE/QUETIAPINE FUMARATE [Concomitant]
     Active Substance: QUETIAPINE FUMARATE
     Dosage: 50 MG, 0?0?1?0, TABLET
     Route: 048
  8. METOPROLOL. [Concomitant]
     Active Substance: METOPROLOL
     Dosage: 50 MG, 0?0?1?0,TABLET
     Route: 048
  9. HYDROCHLOROTHIAZIDE. [Concomitant]
     Active Substance: HYDROCHLOROTHIAZIDE
     Dosage: 25 MG, 1?0?0?0, TABLET
     Route: 048
  10. LEVOTHYROXINE. [Concomitant]
     Active Substance: LEVOTHYROXINE
     Dosage: 75 MICROG, 1?0?0?0, TABLET
     Route: 048
  11. BECLOMETASONE [Concomitant]
     Active Substance: BECLOMETHASONE DIPROPIONATE
     Dosage: 100/6 MICROG, 2?0?2?0, METERED AEROSOL
     Route: 055

REACTIONS (5)
  - Pyrexia [Unknown]
  - Fatigue [Unknown]
  - Condition aggravated [Unknown]
  - Cough [Unknown]
  - General physical health deterioration [Unknown]
